FAERS Safety Report 4537200-6 (Version None)
Quarter: 2004Q4

REPORT INFORMATION
  Report Type: 
  Country: None (occurrence: None)
  Receive Date: 20041221
  Receipt Date: 20041208
  Transmission Date: 20050328
  Serious: Yes (Other)
  Sender: FDA-Public Use
  Company Number: 2004106972

PATIENT
  Sex: Male
  Weight: 79.8331 kg

DRUGS (6)
  1. LIPITOR [Suspect]
     Indication: THROMBOSIS
     Dosage: 40 MG (40 MG, DAILY), ORAL
     Route: 048
     Dates: start: 19940101
  2. LANSOPRAZOLE [Concomitant]
  3. CARVEDILOL [Concomitant]
  4. RAMIPRIL [Concomitant]
  5. ACETYLSALICYLIC ACID (ACETYLSALICYLIC ACID) [Concomitant]
  6. CELECOXIB (CELECOXIB) [Concomitant]

REACTIONS (5)
  - AORTIC ANEURYSM [None]
  - BLOOD CHOLESTEROL INCREASED [None]
  - IMPLANTABLE DEFIBRILLATOR INSERTION [None]
  - LOW DENSITY LIPOPROTEIN INCREASED [None]
  - STOMACH DISCOMFORT [None]
